FAERS Safety Report 5680681-5 (Version None)
Quarter: 2008Q1

REPORT INFORMATION
  Report Type: 
  Country: None (occurrence: None)
  Receive Date: 20080326
  Receipt Date: 20080211
  Transmission Date: 20080703
  Serious: No
  Sender: FDA-Public Use
  Company Number: US-BAUSCH-2008BL000610

PATIENT
  Age: 54 Year
  Sex: Female
  Weight: 90 kg

DRUGS (7)
  1. LOTEMAX [Suspect]
     Indication: CONJUNCTIVITIS ALLERGIC
     Route: 047
     Dates: start: 20080128
  2. LOTEMAX [Suspect]
     Indication: BLEPHARITIS
     Route: 047
     Dates: start: 20080128
  3. DOXYCYCLINE HYCLATE [Suspect]
     Indication: CONJUNCTIVITIS ALLERGIC
     Route: 048
     Dates: start: 20080128
  4. DOXYCYCLINE HYCLATE [Suspect]
     Indication: BLEPHARITIS
     Route: 048
     Dates: start: 20080128
  5. VITAMIN CAP [Concomitant]
  6. CALCIUM WITH VITAMIN D [Concomitant]
  7. SYNTHROID [Concomitant]

REACTIONS (5)
  - BLOOD GLUCOSE INCREASED [None]
  - DRUG INTERACTION [None]
  - EYE PAIN [None]
  - INTRAOCULAR PRESSURE INCREASED [None]
  - MALAISE [None]
